FAERS Safety Report 8308616-7 (Version None)
Quarter: 2012Q2

REPORT INFORMATION
  Report Type: 
  Country: None (occurrence: None)
  Receive Date: 20120421
  Receipt Date: 20120421
  Transmission Date: 20120825
  Serious: Yes (Hospitalization)
  Sender: FDA-Public Use
  Company Number: None

PATIENT
  Sex: Male

DRUGS (1)
  1. RIBAVIRIN [Suspect]
     Indication: HEPATITIS C
     Dosage: 1000MG DAILY PO
     Route: 048
     Dates: start: 20120303, end: 20120401

REACTIONS (5)
  - CARDIAC FAILURE [None]
  - RENAL FAILURE [None]
  - PULMONARY EMBOLISM [None]
  - PAIN IN EXTREMITY [None]
  - BREAST MASS [None]
